FAERS Safety Report 4485345-1 (Version None)
Quarter: 2004Q4

REPORT INFORMATION
  Report Type: 
  Country: None (occurrence: None)
  Receive Date: 20041025
  Receipt Date: 20041025
  Transmission Date: 20050328
  Serious: Yes (Disabling)
  Sender: FDA-Public Use
  Company Number: None

PATIENT
  Age: 60 Year
  Sex: Male
  Weight: 95.2554 kg

DRUGS (1)
  1. ANDRODERM [Suspect]
     Dosage: 5MG DAILY
     Dates: start: 20040810, end: 20041010

REACTIONS (3)
  - GLAUCOMA [None]
  - PHOTOPSIA [None]
  - VISUAL ACUITY REDUCED [None]
